FAERS Safety Report 13135224 (Version 2)
Quarter: 2017Q2

REPORT INFORMATION
  Report Type: Report from Study
  Country: JP (occurrence: JP)
  Receive Date: 20170120
  Receipt Date: 20170425
  Transmission Date: 20170830
  Serious: Yes (Hospitalization)
  Sender: FDA-Public Use
  Company Number: JP-AMGEN-JPNNI2017009445

PATIENT
  Age: 66 Year
  Sex: Male
  Weight: 48 kg

DRUGS (23)
  1. PEGFILGRASTIM [Suspect]
     Active Substance: PEGFILGRASTIM
     Dosage: 3.6 MG, UNK
     Route: 058
     Dates: start: 20160908, end: 20160908
  2. PEGFILGRASTIM [Suspect]
     Active Substance: PEGFILGRASTIM
     Dosage: 3.6 MG, UNK
     Route: 058
     Dates: start: 20161110, end: 20161110
  3. CABAZITAXEL [Concomitant]
     Active Substance: CABAZITAXEL
     Indication: PROSTATE CANCER
     Dosage: 20 MG, UNK
     Route: 041
     Dates: start: 20160810, end: 20160830
  4. LANSOPRAZOLE. [Concomitant]
     Active Substance: LANSOPRAZOLE
     Indication: GASTROOESOPHAGEAL REFLUX DISEASE
     Dosage: UNK
     Route: 048
  5. ADONA [Concomitant]
     Active Substance: CARBAZOCHROME SODIUM SULFONATE
     Indication: HAEMATURIA
     Dosage: UNK
     Route: 048
  6. PEGFILGRASTIM [Suspect]
     Active Substance: PEGFILGRASTIM
     Dosage: 3.6 MG, UNK
     Route: 058
     Dates: start: 20161006, end: 20161006
  7. CABAZITAXEL [Concomitant]
     Active Substance: CABAZITAXEL
     Dosage: 20 MG, UNK
     Route: 041
     Dates: start: 20160906, end: 20160926
  8. PEGFILGRASTIM [Suspect]
     Active Substance: PEGFILGRASTIM
     Indication: COLONY STIMULATING FACTOR PROPHYLAXIS
     Dosage: 3.6 MG, UNK
     Route: 058
     Dates: start: 20160812, end: 20160812
  9. PREDNISOLONE. [Concomitant]
     Active Substance: PREDNISOLONE
     Dosage: UNK
     Route: 048
  10. MAGLAX [Concomitant]
     Active Substance: MAGNESIUM OXIDE
     Indication: CONSTIPATION
     Dosage: UNK
     Route: 048
  11. PREDNISOLONE. [Concomitant]
     Active Substance: PREDNISOLONE
     Dosage: UNK
     Route: 048
  12. SODIUM FERRIC CITRATE [Concomitant]
     Active Substance: FERRIC SODIUM CITRATE
     Indication: IRON DEFICIENCY ANAEMIA
     Dosage: UNK
     Route: 048
  13. TRIAZOLAM. [Concomitant]
     Active Substance: TRIAZOLAM
     Indication: INSOMNIA
     Dosage: UNK
     Route: 048
  14. GRACEVIT [Concomitant]
     Active Substance: SITAFLOXACIN
     Indication: OSTEONECROSIS OF JAW
     Dosage: UNK
     Route: 048
  15. CABAZITAXEL [Concomitant]
     Active Substance: CABAZITAXEL
     Dosage: 20 MG, UNK
     Route: 041
     Dates: start: 20161004, end: 20161024
  16. PREDNISOLONE. [Concomitant]
     Active Substance: PREDNISOLONE
     Indication: PROSTATE CANCER
     Dosage: UNK
     Route: 048
  17. CALCIUM LACTATE [Concomitant]
     Active Substance: CALCIUM LACTATE
     Indication: OSTEOPOROSIS
     Dosage: UNK
     Route: 048
  18. ALFACALCIDOL [Concomitant]
     Active Substance: ALFACALCIDOL
     Indication: OSTEOPOROSIS
     Dosage: UNK
     Route: 048
  19. ALOSENN [Concomitant]
     Active Substance: SENNA LEAF
     Indication: CONSTIPATION
     Dosage: UNK
     Route: 048
  20. CABAZITAXEL [Concomitant]
     Active Substance: CABAZITAXEL
     Dosage: 20 MG, UNK
     Route: 041
     Dates: start: 20161108, end: 20161128
  21. PREDNISOLONE. [Concomitant]
     Active Substance: PREDNISOLONE
     Dosage: UNK
     Route: 048
  22. DECADRON [Concomitant]
     Active Substance: DEXAMETHASONE
     Indication: PROSTATE CANCER
     Dosage: UNK
     Route: 048
  23. SAWACILLIN [Concomitant]
     Active Substance: AMOXICILLIN
     Indication: OSTEONECROSIS OF JAW
     Dosage: UNK
     Route: 048

REACTIONS (5)
  - Headache [Recovering/Resolving]
  - Tumour associated fever [Recovering/Resolving]
  - Decreased appetite [Recovering/Resolving]
  - Diplopia [Recovering/Resolving]
  - Malaise [Recovering/Resolving]

NARRATIVE: CASE EVENT DATE: 20161113
